FAERS Safety Report 9040903 (Version 1)
Quarter: 2013Q1

REPORT INFORMATION
  Report Type: Spontaneous
  Country: US (occurrence: None)
  Receive Date: 20130123
  Receipt Date: 20130123
  Transmission Date: 20140127
  Serious: Yes (Hospitalization)
  Sender: FDA-Public Use
  Company Number: None

PATIENT
  Age: 58 Year
  Sex: Male
  Weight: 127.31 kg

DRUGS (2)
  1. DILTIAZEM [Suspect]
     Indication: HYPERTENSION
     Dosage: 240 MG  BID  PO
     Route: 048
     Dates: start: 20040305, end: 20130117
  2. METOPROLOL [Suspect]
     Indication: HYPERTENSION
     Dosage: 25 MG  BID  PO
     Route: 048
     Dates: start: 20111108

REACTIONS (2)
  - Bradycardia [None]
  - Dizziness [None]
